FAERS Safety Report 10082450 (Version 2)
Quarter: 2014Q2

REPORT INFORMATION
  Report Type: Report from Study
  Country: US (occurrence: US)
  Receive Date: 20140416
  Receipt Date: 20140512
  Transmission Date: 20141212
  Serious: Yes (Hospitalization)
  Sender: FDA-Public Use
  Company Number: US-ACTELION-A-NJ2014-97392

PATIENT
  Age: 65 Year
  Sex: Female

DRUGS (3)
  1. MACITENTAN [Suspect]
     Indication: PULMONARY ARTERIAL HYPERTENSION
     Dosage: 10 MG, UNK
     Route: 048
     Dates: start: 20131224
  2. MACITENTAN [Suspect]
     Dosage: 10 MG, QD
     Route: 048
  3. XARELTO [Concomitant]

REACTIONS (1)
  - Gastroenteritis norovirus [Recovering/Resolving]
